FAERS Safety Report 4896655-8 (Version None)
Quarter: 2005Q4

REPORT INFORMATION
  Report Type: 
  Country: None (occurrence: None)
  Receive Date: 20051223
  Receipt Date: 20050316
  Transmission Date: 20060501
  Serious: Yes (Other)
  Sender: FDA-Public Use
  Company Number: US014938

PATIENT
  Age: 20 Year
  Sex: Female

DRUGS (2)
  1. ACTIQ [Suspect]
     Dates: start: 20030529, end: 20030529
  2. ISOSORBIDE MONONITRATE [Suspect]

REACTIONS (2)
  - ACCIDENTAL OVERDOSE [None]
  - CONVULSION [None]
